FAERS Safety Report 8447302-X (Version None)
Quarter: 2012Q2

REPORT INFORMATION
  Report Type: 
  Country: None (occurrence: None)
  Receive Date: 20120619
  Receipt Date: 20120612
  Transmission Date: 20120825
  Serious: Yes (Hospitalization, Other)
  Sender: FDA-Public Use
  Company Number: PHHY2011VE105373

PATIENT
  Sex: Female

DRUGS (9)
  1. LYRICA [Concomitant]
     Dosage: 75 MG, UNK
     Dates: start: 20111101
  2. ZOLEDRONOC ACID [Suspect]
     Dosage: 5 MG, YEARLY
     Route: 042
     Dates: start: 20101019
  3. TRAMADOL HCL [Concomitant]
     Indication: PAIN
     Dosage: 37.5 MG, UNK
  4. PLAVIX [Concomitant]
     Dosage: 75 MG, UNK
     Dates: start: 20090101
  5. ZOLEDRONOC ACID [Suspect]
     Indication: OSTEOPOROSIS
     Dosage: 5 MG, YEARLY
     Route: 042
     Dates: start: 20081003
  6. VINPERAZ [Concomitant]
     Indication: HYPERTENSION
     Dosage: 4/1.25MG
     Dates: start: 20101201
  7. RACOL [Concomitant]
     Dosage: 20 MG, UNK
  8. ZOLEDRONOC ACID [Suspect]
     Dosage: 5 MG, YEARLY
     Route: 042
     Dates: start: 20091020
  9. ZOLEDRONOC ACID [Suspect]
     Dosage: 5 MG, YEARLY
     Route: 042
     Dates: start: 20111130

REACTIONS (3)
  - URINARY TRACT INFECTION [None]
  - DEHYDRATION [None]
  - CARDIOVASCULAR DISORDER [None]
